FAERS Safety Report 7992075-8 (Version None)
Quarter: 2011Q4

REPORT INFORMATION
  Report Type: 
  Country: None (occurrence: None)
  Receive Date: 20111219
  Receipt Date: 20110308
  Transmission Date: 20120403
  Serious: No
  Sender: FDA-Public Use
  Company Number: US-ASTRAZENECA-2011SE05104

PATIENT
  Age: 53 Year
  Sex: Male
  Weight: 95.3 kg

DRUGS (8)
  1. OMEPRAZOLE [Concomitant]
  2. VITAMIN D [Concomitant]
  3. CRESTOR [Suspect]
     Route: 048
     Dates: start: 20101012
  4. LISINOPRIL [Concomitant]
  5. CRESTOR [Suspect]
     Indication: HYPERCHOLESTEROLAEMIA
     Route: 048
  6. VITAMIN B-12 [Concomitant]
  7. VIT C [Concomitant]
  8. ASPIRIN [Concomitant]

REACTIONS (4)
  - RETCHING [None]
  - SENSATION OF FOREIGN BODY [None]
  - SPEECH DISORDER [None]
  - SALIVARY HYPERSECRETION [None]
